FAERS Safety Report 9667638 (Version 1)
Quarter: 2013Q4

REPORT INFORMATION
  Report Type: Spontaneous
  Country: US (occurrence: US)
  Receive Date: 20131101
  Receipt Date: 20131101
  Transmission Date: 20140711
  Serious: No
  Sender: FDA-Public Use
  Company Number: US-SAVIENT-2012S1000070

PATIENT
  Age: 48 Year
  Sex: Male
  Weight: 120.2 kg

DRUGS (4)
  1. KRYSTEXXA INJECTION [Suspect]
     Indication: GOUT
     Route: 042
     Dates: start: 20120612, end: 20120612
  2. KRYSTEXXA INJECTION [Suspect]
     Indication: GOUT
     Route: 042
     Dates: start: 20120626, end: 20120626
  3. BENADRYL /01563701/ [Concomitant]
     Indication: PREMEDICATION
     Route: 042
     Dates: start: 20120612, end: 20120612
  4. BENADRYL /01563701/ [Concomitant]
     Indication: PREMEDICATION
     Route: 042
     Dates: start: 20120626, end: 20120626

REACTIONS (1)
  - Therapeutic response decreased [Unknown]
